FAERS Safety Report 7394284-8 (Version None)
Quarter: 2011Q2

REPORT INFORMATION
  Report Type: 
  Country: None (occurrence: None)
  Receive Date: 20110405
  Receipt Date: 20110322
  Transmission Date: 20111010
  Serious: Yes (Death, Life-Threatening, Hospitalization)
  Sender: FDA-Public Use
  Company Number: US-JNJFOC-20110301136

PATIENT
  Sex: Male
  Weight: 81 kg

DRUGS (25)
  1. REMICADE [Suspect]
     Route: 042
  2. LIDODERM [Concomitant]
     Route: 061
  3. ZOFRAN [Concomitant]
     Route: 048
  4. OXYCONTIN [Concomitant]
     Indication: PAIN
     Route: 048
  5. REMICADE [Suspect]
     Route: 042
  6. LINEZOLID [Concomitant]
     Indication: ENTEROCOCCAL BACTERAEMIA
  7. VALACICLOVIR [Concomitant]
  8. XANAX [Concomitant]
  9. BUMEX [Concomitant]
  10. ZAROXOLYN [Concomitant]
     Route: 048
  11. PRILOSEC [Concomitant]
     Route: 047
  12. REMICADE [Suspect]
     Indication: GRAFT VERSUS HOST DISEASE
     Route: 042
  13. GANCICLOVIR [Concomitant]
  14. ROXICODONE [Concomitant]
     Indication: PAIN
  15. AKWA TEARS OPHTH [Concomitant]
     Route: 047
  16. REMERON [Concomitant]
     Route: 048
  17. KENALOG [Concomitant]
     Route: 061
  18. MAALOX [Concomitant]
  19. ATROPINE [Concomitant]
     Route: 047
  20. SARNA [Concomitant]
     Route: 061
  21. REFRESH [Concomitant]
     Dosage: 1 DROP TO EACH EYE AS NEEDED 5-6 TIMES DAILY
     Route: 047
  22. FLOMAX [Concomitant]
     Route: 048
  23. REMICADE [Suspect]
     Route: 042
  24. DAPTOMYCIN [Concomitant]
     Indication: ENTEROCOCCAL BACTERAEMIA
  25. PREDNISONE [Concomitant]

REACTIONS (7)
  - GRAFT VERSUS HOST DISEASE [None]
  - RENAL FAILURE [None]
  - SALMONELLOSIS [None]
  - SALMONELLA BACTERAEMIA [None]
  - CYTOMEGALOVIRUS INFECTION [None]
  - ADENOVIRUS INFECTION [None]
  - ENTEROCOCCAL BACTERAEMIA [None]
